FAERS Safety Report 25940099 (Version 1)
Quarter: 2025Q4

REPORT INFORMATION
  Report Type: Spontaneous
  Country: US (occurrence: US)
  Receive Date: 20251020
  Receipt Date: 20251020
  Transmission Date: 20260119
  Serious: No
  Sender: GALDERMA
  Company Number: US-GALDERMA-US2025019042

PATIENT

DRUGS (1)
  1. NEMLUVIO [Suspect]
     Active Substance: NEMOLIZUMAB-ILTO
     Indication: Dermatitis atopic
     Route: 058

REACTIONS (6)
  - Fall [Unknown]
  - Illness [Unknown]
  - Nasal congestion [Unknown]
  - Dry mouth [Unknown]
  - Lip erythema [Unknown]
  - Lip pruritus [Unknown]
